FAERS Safety Report 7317989-3 (Version None)
Quarter: 2011Q1

REPORT INFORMATION
  Report Type: 
  Country: None (occurrence: None)
  Receive Date: 20110227
  Receipt Date: 20110201
  Transmission Date: 20110831
  Serious: No
  Sender: FDA-Public Use
  Company Number: US-B.I. PHARMACEUTICALS,INC./RIDGEFIELD-2011-BP-03307BP

PATIENT
  Sex: Female

DRUGS (8)
  1. GLUCOSAMINE [Concomitant]
     Indication: ARTHROPATHY
  2. PRADAXA [Suspect]
     Indication: ATRIAL FIBRILLATION
     Dosage: 300 MG
     Route: 048
     Dates: start: 20101215
  3. ASCORBIC ACID [Concomitant]
     Indication: SUPPLEMENTATION THERAPY
  4. DIOVAN [Concomitant]
     Indication: BLOOD PRESSURE
     Dosage: 80 MG
     Route: 048
     Dates: start: 20101215
  5. DILTIAZEM [Concomitant]
     Indication: CARDIAC DISORDER
     Dosage: 120 MG
     Route: 048
     Dates: start: 20101215
  6. ALENDRONATE [Concomitant]
     Indication: OSTEOPOROSIS
     Route: 048
  7. VITAMIN E [Concomitant]
     Indication: SUPPLEMENTATION THERAPY
  8. CALCIUM [Concomitant]
     Indication: SUPPLEMENTATION THERAPY

REACTIONS (1)
  - ABNORMAL FAECES [None]
